FAERS Safety Report 15124476 (Version 1)
Quarter: 2018Q3

REPORT INFORMATION
  Report Type: Report from Study
  Country: GB (occurrence: GB)
  Receive Date: 20180710
  Receipt Date: 20180710
  Transmission Date: 20181010
  Serious: Yes (Other)
  Sender: FDA-Public Use
  Company Number: GB-ROCHE-2151607

PATIENT

DRUGS (2)
  1. DIAZEPAM. [Suspect]
     Active Substance: DIAZEPAM
     Indication: SEDATION
     Dosage: NOT MORE THAN 0.3 MG/KG OF DIAZEPAM WAS GIVEN SLOWLY AT THE RATE OF 5 MG/MIN
     Route: 065
  2. ALTHESIN [Suspect]
     Active Substance: ALFADOLONE ACETATE\ALFAXALONE
     Indication: SEDATION
     Route: 065

REACTIONS (1)
  - Obstructive airways disorder [Unknown]
